FAERS Safety Report 19968228 (Version 1)
Quarter: 2021Q4

REPORT INFORMATION
  Report Type: Spontaneous
  Country: US (occurrence: US)
  Receive Date: 20211019
  Receipt Date: 20211019
  Transmission Date: 20220303
  Serious: Yes (Death)
  Sender: FDA-Public Use
  Company Number: US-ZHEJIANG JUTAI PHARMACEUTICALS-000011

PATIENT
  Age: 13 Year
  Sex: Female

DRUGS (1)
  1. BUPROPION [Suspect]
     Active Substance: BUPROPION
     Indication: Product used for unknown indication

REACTIONS (3)
  - Cardiac arrest [Fatal]
  - Nervous system disorder [Unknown]
  - Overdose [Unknown]
